FAERS Safety Report 8460371-6 (Version None)
Quarter: 2012Q2

REPORT INFORMATION
  Report Type: 
  Country: None (occurrence: None)
  Receive Date: 20120622
  Receipt Date: 20120613
  Transmission Date: 20120825
  Serious: Yes (Hospitalization, Other)
  Sender: FDA-Public Use
  Company Number: US-ABBOTT-12P-163-0945789-00

PATIENT
  Age: 48 Year
  Sex: Female

DRUGS (6)
  1. IBUPROFEN [Concomitant]
     Indication: PAIN
     Dosage: PRN
  2. HUMIRA [Suspect]
  3. HUMIRA [Suspect]
     Indication: RHEUMATOID ARTHRITIS
     Dates: start: 20070101
  4. ANTIBIOTICS [Suspect]
     Indication: SKIN INFECTION
     Dates: start: 20120518, end: 20120524
  5. ANTIBIOTIC [Suspect]
     Indication: SKIN INFECTION
     Dates: start: 20120524
  6. VICODIN [Concomitant]
     Indication: PAIN
     Dosage: PRN

REACTIONS (13)
  - FALL [None]
  - OEDEMA PERIPHERAL [None]
  - SKIN DISCOLOURATION [None]
  - MUSCULAR WEAKNESS [None]
  - ARTHRALGIA [None]
  - ANXIETY [None]
  - RHEUMATOID ARTHRITIS [None]
  - PAIN IN EXTREMITY [None]
  - SKIN INFECTION [None]
  - MUSCULOSKELETAL PAIN [None]
  - LOWER LIMB FRACTURE [None]
  - UNEVALUABLE EVENT [None]
  - BLOOD CALCIUM DECREASED [None]
